FAERS Safety Report 5019962-7 (Version None)
Quarter: 2006Q2

REPORT INFORMATION
  Report Type: 
  Country: None (occurrence: None)
  Receive Date: 20060601
  Receipt Date: 20060523
  Transmission Date: 20061013
  Serious: Yes (Hospitalization)
  Sender: FDA-Public Use
  Company Number: ITWYE649124MAY06

PATIENT
  Age: 48 Year
  Sex: Female

DRUGS (46)
  1. SIROLIMUS (SIROLIMUS, TABLET) [Suspect]
     Indication: PROPHYLAXIS AGAINST TRANSPLANT REJECTION
     Dosage: SEE IMAGE
     Route: 048
     Dates: start: 20060410, end: 20060410
  2. SIROLIMUS (SIROLIMUS, TABLET) [Suspect]
     Indication: PROPHYLAXIS AGAINST TRANSPLANT REJECTION
     Dosage: SEE IMAGE
     Route: 048
     Dates: start: 20060411, end: 20060413
  3. SIROLIMUS (SIROLIMUS, TABLET) [Suspect]
     Indication: PROPHYLAXIS AGAINST TRANSPLANT REJECTION
     Dosage: SEE IMAGE
     Route: 048
     Dates: start: 20060414, end: 20060419
  4. SIROLIMUS (SIROLIMUS, TABLET) [Suspect]
     Indication: PROPHYLAXIS AGAINST TRANSPLANT REJECTION
     Dosage: SEE IMAGE
     Route: 048
     Dates: start: 20060420, end: 20060508
  5. SIROLIMUS (SIROLIMUS, TABLET) [Suspect]
     Indication: PROPHYLAXIS AGAINST TRANSPLANT REJECTION
     Dosage: SEE IMAGE
     Route: 048
     Dates: start: 20060509, end: 20060512
  6. SIROLIMUS (SIROLIMUS, TABLET) [Suspect]
     Indication: PROPHYLAXIS AGAINST TRANSPLANT REJECTION
     Dosage: SEE IMAGE
     Route: 048
     Dates: start: 20060513
  7. CYCLOSPORINE [Concomitant]
  8. CYCLOSPORINE [Concomitant]
  9. CYCLOSPORINE [Concomitant]
  10. CYCLOSPORINE [Concomitant]
  11. CYCLOSPORINE [Concomitant]
  12. CYCLOSPORINE [Concomitant]
  13. CYCLOSPORINE [Concomitant]
  14. CYCLOSPORINE [Concomitant]
  15. CYCLOSPORINE [Concomitant]
  16. SIMULECT [Concomitant]
  17. SIMULECT [Concomitant]
  18. METHYLPREDNISOLONE [Concomitant]
  19. METHYLPREDNISOLONE [Concomitant]
  20. METHYLPREDNISOLONE [Concomitant]
  21. METHYLPREDNISOLONE [Concomitant]
  22. METHYLPREDNISOLONE [Concomitant]
  23. METHYLPREDNISOLONE [Concomitant]
  24. PREDNISONE TAB [Concomitant]
  25. PREDNISONE TAB [Concomitant]
  26. PREDNISONE TAB [Concomitant]
  27. PREDNISONE TAB [Concomitant]
  28. PREDNISONE TAB [Concomitant]
  29. RANITIDINE [Concomitant]
  30. CEFOTAXIME SODIUM [Concomitant]
  31. DOPAMINE HCL [Concomitant]
  32. TRAMADOL HCL [Concomitant]
  33. FUROSEMIDE [Concomitant]
  34. FUROSEMIDE [Concomitant]
  35. ENOXAPARIN SODIUM [Concomitant]
  36. NYSTATIN [Concomitant]
  37. TYROSINE (TYROSINE) [Concomitant]
  38. ATENOLOL [Concomitant]
  39. CALCITRIOL [Concomitant]
  40. CALCIUM CARBONATE (CALCIUM CARBONATE) [Concomitant]
  41. POTASSIUM CHLORIDE [Concomitant]
  42. AMLODIPINE [Concomitant]
  43. FLUVASTATIN (FLUVASTATIN) [Concomitant]
  44. GALENIC / SULFADIAZINE/TRIMETHOPRIM/ (SULFADIAZINE/TRIMETHOPRIM) [Concomitant]
  45. NEBIVOLOL (NEBIVOLOL) [Concomitant]
  46. INSULIN [Concomitant]

REACTIONS (1)
  - NECROSIS ISCHAEMIC [None]
